FAERS Safety Report 21530537 (Version 1)
Quarter: 2022Q4

REPORT INFORMATION
  Report Type: Spontaneous
  Country: US (occurrence: None)
  Receive Date: 20221028
  Receipt Date: 20221028
  Transmission Date: 20230112
  Serious: Yes (Hospitalization)
  Sender: FDA-Public Use
  Company Number: None

PATIENT
  Sex: Female

DRUGS (1)
  1. FERAHEME [Suspect]
     Active Substance: FERUMOXYTOL NON-STOICHIOMETRIC MAGNETITE

REACTIONS (5)
  - Infusion related reaction [None]
  - Flushing [None]
  - Dyspnoea [None]
  - Chest discomfort [None]
  - Muscle spasms [None]

NARRATIVE: CASE EVENT DATE: 20211026
